FAERS Safety Report 6605005-8 (Version None)
Quarter: 2010Q1

REPORT INFORMATION
  Report Type: 
  Country: None (occurrence: None)
  Receive Date: 20100226
  Receipt Date: 20100215
  Transmission Date: 20100710
  Serious: Yes (Death, Congenital Anomaly)
  Sender: FDA-Public Use
  Company Number: EE-BRISTOL-MYERS SQUIBB COMPANY-14976393

PATIENT
  Age: 2 Day
  Sex: Female
  Weight: 2 kg

DRUGS (2)
  1. MONOPRIL [Suspect]
     Dosage: 10MG * 1
     Route: 064
  2. TEVETEN [Concomitant]
     Route: 064

REACTIONS (6)
  - CARDIOPULMONARY FAILURE [None]
  - FOETAL GROWTH RETARDATION [None]
  - HYPOTONIA [None]
  - LIMB MALFORMATION [None]
  - RENAL FAILURE [None]
  - SKULL MALFORMATION [None]
